FAERS Safety Report 4783568-5 (Version None)
Quarter: 2005Q3

REPORT INFORMATION
  Report Type: 
  Country: None (occurrence: None)
  Receive Date: 20050929
  Receipt Date: 20050920
  Transmission Date: 20060218
  Serious: Yes (Hospitalization, Other)
  Sender: FDA-Public Use
  Company Number: JP-JNJFOC-20050905501

PATIENT

DRUGS (10)
  1. RISPERDAL [Suspect]
     Indication: DELIRIUM
     Route: 048
  2. THEOPHYLLINE [Concomitant]
     Route: 048
  3. NITRAZEPAM [Concomitant]
     Route: 048
  4. NIFEDIPINE [Concomitant]
     Route: 048
  5. BUNAZOSIN HYDROCHLORIDE [Concomitant]
     Route: 048
  6. DISTIGMINE BROMIDE [Concomitant]
     Route: 048
  7. CHLORMADINONE ACETATE TAB [Concomitant]
     Route: 048
  8. DISOPYRAMIDE [Concomitant]
     Route: 048
  9. PRAVASTATIN SODIUM [Concomitant]
     Route: 048
  10. FAMOTIDINE [Concomitant]
     Route: 048

REACTIONS (1)
  - RESPIRATORY FAILURE [None]
